FAERS Safety Report 6860121-0 (Version None)
Quarter: 2010Q3

REPORT INFORMATION
  Report Type: 
  Country: None (occurrence: None)
  Receive Date: 20100720
  Receipt Date: 20100713
  Transmission Date: 20110219
  Serious: Yes (Other)
  Sender: FDA-Public Use
  Company Number: AR-ELI_LILLY_AND_COMPANY-AR201005005130

PATIENT
  Sex: Male
  Weight: 79 kg

DRUGS (2)
  1. EXENATIDE LONG ACTING RELEASE 2MG [Suspect]
     Indication: TYPE 2 DIABETES MELLITUS
     Dosage: 2 UG, WEEKLY (1/W)
     Route: 065
     Dates: start: 20090512
  2. PIOGLITAZONE [Suspect]
     Indication: TYPE 2 DIABETES MELLITUS
     Dosage: UNK, UNKNOWN
     Route: 065
     Dates: start: 20090513

REACTIONS (2)
  - ANAEMIA [None]
  - HYPERGAMMAGLOBULINAEMIA [None]
